FAERS Safety Report 5694828-8 (Version None)
Quarter: 2008Q2

REPORT INFORMATION
  Report Type: 
  Country: None (occurrence: None)
  Receive Date: 20080404
  Receipt Date: 20080331
  Transmission Date: 20081010
  Serious: Yes (Disabling, Other)
  Sender: FDA-Public Use
  Company Number: US-ASTRAZENECA-2007UW07864

PATIENT
  Sex: Male

DRUGS (3)
  1. RHINOCORT [Suspect]
     Indication: NASAL CONGESTION
     Route: 045
     Dates: start: 20040601
  2. VYTORIN [Concomitant]
  3. CARTIA XT [Concomitant]

REACTIONS (3)
  - ASTHENOPIA [None]
  - CATARACT SUBCAPSULAR [None]
  - HEADACHE [None]
